FAERS Safety Report 6083837-5 (Version None)
Quarter: 2009Q1

REPORT INFORMATION
  Report Type: 
  Country: None (occurrence: None)
  Receive Date: 20090219
  Receipt Date: 20090206
  Transmission Date: 20090719
  Serious: Yes (Hospitalization)
  Sender: FDA-Public Use
  Company Number: ES-ELI_LILLY_AND_COMPANY-ES200902001952

PATIENT
  Age: 68 Year
  Sex: Male

DRUGS (3)
  1. FORTEO [Suspect]
     Indication: OSTEOPOROSIS
     Dosage: 20 UG, UNK
     Route: 058
     Dates: start: 20080101
  2. FORTEO [Suspect]
     Dosage: 20 UG, UNK
     Dates: start: 20090204
  3. TIROXINA [Concomitant]
     Indication: HYPOTHYROIDISM

REACTIONS (2)
  - CHOLECYSTITIS INFECTIVE [None]
  - GOUT [None]
